FAERS Safety Report 7551391-4 (Version None)
Quarter: 2011Q2

REPORT INFORMATION
  Report Type: 
  Country: None (occurrence: None)
  Receive Date: 20110609
  Receipt Date: 20110520
  Transmission Date: 20111010
  Serious: Yes (Other)
  Sender: FDA-Public Use
  Company Number: 2011SP023516

PATIENT
  Age: 75 Year
  Sex: Female

DRUGS (13)
  1. CELLUVISC (CARMELLOSE SODIUM) [Concomitant]
  2. MOVICOL (MOVICOL /01749801/) [Concomitant]
  3. CEDAX [Suspect]
     Indication: RESPIRATORY TRACT INFECTION
     Dosage: 400 MG;CAP;PO;QD
     Route: 048
     Dates: start: 20110311, end: 20110316
  4. SINTROM [Suspect]
     Indication: ATRIAL FIBRILLATION
     Dosage: 4 MG;TAB;PO;QW
     Route: 048
     Dates: start: 20101022
  5. OMEPRAZOLE (OMEPRAZOLE /00661201/) [Concomitant]
  6. MELATONIN (MELATONIN) [Concomitant]
  7. ISOPTIN (VERAPAMIL HYDROCHLORIDE /00014302/) [Concomitant]
  8. TRAMADOL HYDROCHLORIDE [Concomitant]
  9. SALAGEN (PILOCARPINE HYDROCHLORIDE /00043503/) [Concomitant]
  10. SIMVASTATIN [Concomitant]
  11. RYTMONORM (PROPAFENONE HYDROCHLORIDE) [Concomitant]
  12. OSSEOR (STRONTIUM RANELATE) [Concomitant]
  13. NATECAL D3 (LEKOVIT CA) [Concomitant]

REACTIONS (6)
  - RESPIRATORY TRACT INFECTION [None]
  - INTERNATIONAL NORMALISED RATIO INCREASED [None]
  - ANAEMIA [None]
  - ORAL HERPES [None]
  - ORAL CANDIDIASIS [None]
  - LOBAR PNEUMONIA [None]
